FAERS Safety Report 14187283 (Version 1)
Quarter: 2017Q4

REPORT INFORMATION
  Report Type: Spontaneous
  Country: ES (occurrence: ES)
  Receive Date: 20171114
  Receipt Date: 20171114
  Transmission Date: 20180321
  Serious: Yes (Other)
  Sender: FDA-Public Use
  Company Number: ES-AKORN PHARMACEUTICALS-2017AKN01297

PATIENT
  Age: 4 Year
  Sex: Male

DRUGS (1)
  1. TRIAMCINOLONE ACETONIDE. [Suspect]
     Active Substance: TRIAMCINOLONE ACETONIDE
     Dosage: UNK, ONCE
     Route: 031

REACTIONS (3)
  - Retinal artery embolism [Recovering/Resolving]
  - Visual acuity reduced [Recovering/Resolving]
  - Eye haemorrhage [Recovering/Resolving]
